FAERS Safety Report 4359559-5 (Version None)
Quarter: 2004Q2

REPORT INFORMATION
  Report Type: 
  Country: None (occurrence: None)
  Receive Date: 20040513
  Receipt Date: 20040430
  Transmission Date: 20050107
  Serious: Yes (Other)
  Sender: FDA-Public Use
  Company Number: 2004029730

PATIENT
  Age: 40 Year
  Sex: Female
  Weight: 70.3075 kg

DRUGS (2)
  1. GEODON [Suspect]
     Indication: DEPRESSION
     Dosage: 80 MG (2 IN 1 D), ORAL
     Route: 048
     Dates: start: 20040429, end: 20040430
  2. PAROXETINE HCL [Concomitant]

REACTIONS (14)
  - CHEST DISCOMFORT [None]
  - CHEST PAIN [None]
  - CONSTIPATION [None]
  - DIARRHOEA [None]
  - DIZZINESS [None]
  - DIZZINESS POSTURAL [None]
  - DRY MOUTH [None]
  - DYSARTHRIA [None]
  - FEELING DRUNK [None]
  - IMPAIRED WORK ABILITY [None]
  - LETHARGY [None]
  - RASH [None]
  - SEROTONIN SYNDROME [None]
  - SOMNOLENCE [None]
